FAERS Safety Report 4871959-3 (Version None)
Quarter: 2005Q4

REPORT INFORMATION
  Report Type: 
  Country: None (occurrence: None)
  Receive Date: 20051230
  Receipt Date: 20051220
  Transmission Date: 20060501
  Serious: Yes (Death, Hospitalization)
  Sender: FDA-Public Use
  Company Number: S05-USA-05282-01

PATIENT
  Age: 62 Year
  Sex: Male

DRUGS (1)
  1. LEVOTHROID [Suspect]
     Dates: end: 20051130

REACTIONS (2)
  - DEHYDRATION [None]
  - RENAL FAILURE ACUTE [None]
